FAERS Safety Report 16863920 (Version 2)
Quarter: 2020Q1

REPORT INFORMATION
  Report Type: Spontaneous
  Country: SE (occurrence: SE)
  Receive Date: 20190927
  Receipt Date: 20200304
  Transmission Date: 20200409
  Serious: Yes (Other)
  Sender: FDA-Public Use
  Company Number: SE-SHIRE-SE201931232

PATIENT

DRUGS (66)
  1. ILOPERIDONE. [Suspect]
     Active Substance: ILOPERIDONE
     Dosage: UNK
     Route: 065
  2. DEXAMFETAMINE [Suspect]
     Active Substance: DEXTROAMPHETAMINE
     Indication: PRODUCT USED FOR UNKNOWN INDICATION
     Route: 065
  3. AMFETAMINE [Suspect]
     Active Substance: AMPHETAMINE
     Dosage: UNK
     Route: 065
  4. VALPROIC ACID. [Suspect]
     Active Substance: VALPROIC ACID
     Dosage: UNK
     Route: 065
  5. METHYLPHENIDATE. [Suspect]
     Active Substance: METHYLPHENIDATE
     Dosage: UNK
     Route: 065
  6. CHLORPROMAZINE. [Suspect]
     Active Substance: CHLORPROMAZINE
     Indication: PRODUCT USED FOR UNKNOWN INDICATION
     Route: 065
  7. CHLORPROMAZINE. [Suspect]
     Active Substance: CHLORPROMAZINE
     Route: 065
  8. CLONIDINE. [Suspect]
     Active Substance: CLONIDINE
     Dosage: UNK
     Route: 065
  9. LITHIUM. [Suspect]
     Active Substance: LITHIUM
     Dosage: UNK
     Route: 065
  10. ILOPERIDONE. [Suspect]
     Active Substance: ILOPERIDONE
     Dosage: UNK
     Route: 065
  11. ATOMOXETINE. [Suspect]
     Active Substance: ATOMOXETINE HYDROCHLORIDE
     Dosage: UNK
     Route: 065
  12. CARBAMAZEPINE. [Suspect]
     Active Substance: CARBAMAZEPINE
     Indication: PRODUCT USED FOR UNKNOWN INDICATION
     Dosage: UNK
     Route: 065
  13. CHLORPROMAZINE. [Suspect]
     Active Substance: CHLORPROMAZINE
     Dosage: UNK
     Route: 065
  14. ZIPRASIDONE. [Suspect]
     Active Substance: ZIPRASIDONE
     Dosage: UNK
     Route: 065
  15. LITHIUM. [Suspect]
     Active Substance: LITHIUM
     Dosage: UNK
     Route: 065
  16. QUETIAPINE. [Suspect]
     Active Substance: QUETIAPINE
     Dosage: UNK
     Route: 065
  17. QUETIAPINE. [Suspect]
     Active Substance: QUETIAPINE
     Route: 065
  18. ARIPIPRAZOLE. [Suspect]
     Active Substance: ARIPIPRAZOLE
     Dosage: UNK
     Route: 065
  19. ARIPIPRAZOLE. [Suspect]
     Active Substance: ARIPIPRAZOLE
     Dosage: UNK
     Route: 065
  20. ATOMOXETINE. [Suspect]
     Active Substance: ATOMOXETINE HYDROCHLORIDE
     Dosage: UNK
     Route: 065
  21. AMFETAMINE [Suspect]
     Active Substance: AMPHETAMINE
     Dosage: UNK
     Route: 065
  22. METHYLPHENIDATE. [Suspect]
     Active Substance: METHYLPHENIDATE
     Indication: PRODUCT USED FOR UNKNOWN INDICATION
     Dosage: UNK
     Route: 065
  23. METHYLPHENIDATE. [Suspect]
     Active Substance: METHYLPHENIDATE
     Dosage: UNK
     Route: 065
  24. CHLORPROMAZINE. [Suspect]
     Active Substance: CHLORPROMAZINE
     Dosage: UNK
     Route: 065
  25. CLONIDINE. [Suspect]
     Active Substance: CLONIDINE
     Dosage: UNK
     Route: 065
  26. ATOMOXETINE. [Suspect]
     Active Substance: ATOMOXETINE HYDROCHLORIDE
     Indication: PRODUCT USED FOR UNKNOWN INDICATION
     Dosage: UNK
     Route: 065
  27. ATOMOXETINE. [Suspect]
     Active Substance: ATOMOXETINE HYDROCHLORIDE
     Dosage: UNK
     Route: 065
  28. CARBAMAZEPINE. [Suspect]
     Active Substance: CARBAMAZEPINE
     Dosage: UNK
     Route: 065
  29. DEXAMFETAMINE [Suspect]
     Active Substance: DEXTROAMPHETAMINE
     Dosage: UNK
     Route: 065
  30. DEXAMFETAMINE [Suspect]
     Active Substance: DEXTROAMPHETAMINE
     Dosage: UNK
     Route: 065
  31. CHLORPROMAZINE. [Suspect]
     Active Substance: CHLORPROMAZINE
     Dosage: UNK
     Route: 065
  32. CLONIDINE. [Suspect]
     Active Substance: CLONIDINE
     Dosage: UNK
     Route: 065
  33. ZIPRASIDONE. [Suspect]
     Active Substance: ZIPRASIDONE
     Dosage: UNK
     Route: 065
  34. QUETIAPINE. [Suspect]
     Active Substance: QUETIAPINE
     Dosage: UNK
     Route: 065
  35. ARIPIPRAZOLE. [Suspect]
     Active Substance: ARIPIPRAZOLE
     Dosage: UNK
     Route: 065
  36. ARIPIPRAZOLE. [Suspect]
     Active Substance: ARIPIPRAZOLE
     Dosage: UNK
  37. ILOPERIDONE. [Suspect]
     Active Substance: ILOPERIDONE
     Dosage: UNK
     Route: 065
  38. ATOMOXETINE. [Suspect]
     Active Substance: ATOMOXETINE HYDROCHLORIDE
     Dosage: UNK
     Route: 065
  39. AMFETAMINE [Suspect]
     Active Substance: AMPHETAMINE
     Indication: PRODUCT USED FOR UNKNOWN INDICATION
     Route: 065
  40. VALPROIC ACID. [Suspect]
     Active Substance: VALPROIC ACID
     Dosage: UNK
     Route: 065
  41. LITHIUM. [Suspect]
     Active Substance: LITHIUM
     Dosage: UNK
     Route: 065
  42. QUETIAPINE. [Suspect]
     Active Substance: QUETIAPINE
     Indication: PRODUCT USED FOR UNKNOWN INDICATION
     Route: 065
  43. 489 (LISDEXAMFETAMINE DIMESYLATE) [Suspect]
     Active Substance: LISDEXAMFETAMINE DIMESYLATE
     Indication: PRODUCT USED FOR UNKNOWN INDICATION
     Route: 065
  44. ILOPERIDONE. [Suspect]
     Active Substance: ILOPERIDONE
     Indication: PRODUCT USED FOR UNKNOWN INDICATION
     Dosage: UNK
     Route: 065
  45. ILOPERIDONE. [Suspect]
     Active Substance: ILOPERIDONE
     Dosage: UNK
     Route: 065
  46. CARBAMAZEPINE. [Suspect]
     Active Substance: CARBAMAZEPINE
     Dosage: UNK
     Route: 065
  47. AMFETAMINE [Suspect]
     Active Substance: AMPHETAMINE
     Dosage: UNK
     Route: 065
  48. CLONIDINE. [Suspect]
     Active Substance: CLONIDINE
     Indication: PRODUCT USED FOR UNKNOWN INDICATION
     Route: 065
  49. ZIPRASIDONE. [Suspect]
     Active Substance: ZIPRASIDONE
     Indication: PRODUCT USED FOR UNKNOWN INDICATION
     Route: 065
  50. LITHIUM. [Suspect]
     Active Substance: LITHIUM
     Indication: PRODUCT USED FOR UNKNOWN INDICATION
     Dosage: UNK
     Route: 065
  51. ARIPIPRAZOLE. [Suspect]
     Active Substance: ARIPIPRAZOLE
     Indication: PRODUCT USED FOR UNKNOWN INDICATION
     Route: 065
  52. CARBAMAZEPINE. [Suspect]
     Active Substance: CARBAMAZEPINE
     Dosage: UNK
     Route: 065
  53. DEXAMFETAMINE [Suspect]
     Active Substance: DEXTROAMPHETAMINE
     Dosage: UNK
     Route: 065
  54. VALPROIC ACID. [Suspect]
     Active Substance: VALPROIC ACID
     Dosage: UNK
     Route: 065
  55. METHYLPHENIDATE. [Suspect]
     Active Substance: METHYLPHENIDATE
     Dosage: UNK
     Route: 065
  56. ZIPRASIDONE. [Suspect]
     Active Substance: ZIPRASIDONE
     Dosage: UNK
     Route: 065
  57. ZIPRASIDONE. [Suspect]
     Active Substance: ZIPRASIDONE
     Dosage: UNK
     Route: 065
  58. CARBAMAZEPINE. [Suspect]
     Active Substance: CARBAMAZEPINE
     Dosage: UNK
     Route: 065
  59. DEXAMFETAMINE [Suspect]
     Active Substance: DEXTROAMPHETAMINE
     Route: 065
  60. AMFETAMINE [Suspect]
     Active Substance: AMPHETAMINE
     Route: 065
  61. VALPROIC ACID. [Suspect]
     Active Substance: VALPROIC ACID
     Indication: PRODUCT USED FOR UNKNOWN INDICATION
     Route: 065
  62. VALPROIC ACID. [Suspect]
     Active Substance: VALPROIC ACID
     Dosage: UNK
     Route: 065
  63. METHYLPHENIDATE. [Suspect]
     Active Substance: METHYLPHENIDATE
     Dosage: UNK
     Route: 065
  64. CLONIDINE. [Suspect]
     Active Substance: CLONIDINE
     Dosage: UNK
     Route: 065
  65. LITHIUM. [Suspect]
     Active Substance: LITHIUM
     Dosage: UNK
     Route: 065
  66. QUETIAPINE. [Suspect]
     Active Substance: QUETIAPINE
     Indication: PRODUCT USED FOR UNKNOWN INDICATION
     Route: 065

REACTIONS (27)
  - Sydenham^s chorea [Unknown]
  - Homicidal ideation [Unknown]
  - Crying [Unknown]
  - Dyskinesia [Unknown]
  - Drug ineffective [Unknown]
  - Bruxism [Unknown]
  - Sleep disorder [Unknown]
  - Anxiety [Unknown]
  - Fatigue [Unknown]
  - Suicidal ideation [Unknown]
  - Aggression [Unknown]
  - Coordination abnormal [Unknown]
  - Hyperkinesia [Unknown]
  - Nervousness [Unknown]
  - Choreoathetosis [Unknown]
  - Decreased eye contact [Unknown]
  - Poor quality sleep [Unknown]
  - Oppositional defiant disorder [Unknown]
  - Irritability [Unknown]
  - Psychomotor hyperactivity [Unknown]
  - Insomnia [Unknown]
  - Trismus [Unknown]
  - Affect lability [Unknown]
  - Streptococcal infection [Unknown]
  - Mood altered [Unknown]
  - Speech disorder [Unknown]
  - Depressed mood [Unknown]
